FAERS Safety Report 17993063 (Version 5)
Quarter: 2021Q4

REPORT INFORMATION
  Report Type: Spontaneous
  Country: JP (occurrence: JP)
  Receive Date: 20200708
  Receipt Date: 20211109
  Transmission Date: 20220303
  Serious: Yes (Life-Threatening, Hospitalization, Other)
  Sender: FDA-Public Use
  Company Number: JP-KYOWAKIRIN-2020AKK010923

PATIENT
  Age: 73 Year
  Sex: Female

DRUGS (24)
  1. PEGFILGRASTIM [Suspect]
     Active Substance: PEGFILGRASTIM
     Indication: Colony stimulating factor therapy
     Dosage: 3.6 MILLIGRAM, QD
     Route: 058
     Dates: start: 20200620, end: 20200620
  2. DOXIL [Suspect]
     Active Substance: DOXORUBICIN HYDROCHLORIDE
     Indication: Fallopian tube cancer
     Dosage: 79 MILLIGRAM, QD
     Route: 042
     Dates: start: 20200507, end: 20200507
  3. DOXIL [Suspect]
     Active Substance: DOXORUBICIN HYDROCHLORIDE
     Dosage: 79 MILLIGRAM, QD
     Route: 042
     Dates: start: 20200618, end: 20200618
  4. ACETAMINOPHEN [Concomitant]
     Active Substance: ACETAMINOPHEN
     Indication: Pyrexia
     Dosage: 600 MILLIGRAM, AS NECESSARY
     Route: 065
     Dates: start: 20200625, end: 20200628
  5. DEXTROSE [Concomitant]
     Active Substance: DEXTROSE
     Indication: Ovarian cancer
     Dosage: 250 MILLIGRAM, QD
     Route: 042
     Dates: start: 20200507, end: 20200507
  6. DEXTROSE [Concomitant]
     Active Substance: DEXTROSE
     Dosage: 250 MILLIGRAM, QD
     Route: 042
     Dates: start: 20200618, end: 20200618
  7. GRANISETRON HYDROCHLORIDE [Concomitant]
     Active Substance: GRANISETRON HYDROCHLORIDE
     Indication: Prophylaxis of nausea and vomiting
     Dosage: 3 MILLIGRAM, QD
     Route: 042
     Dates: start: 20200507, end: 20200507
  8. GRANISETRON HYDROCHLORIDE [Concomitant]
     Active Substance: GRANISETRON HYDROCHLORIDE
     Dosage: 3 MILLIGRAM, QD
     Route: 042
     Dates: start: 20200618, end: 20200618
  9. DEXAMETHASONE SODIUM PHOSPHATE [Concomitant]
     Active Substance: DEXAMETHASONE SODIUM PHOSPHATE
     Indication: Prophylaxis of nausea and vomiting
     Dosage: 6.6 MILLIGRAM, QD
     Route: 042
     Dates: start: 20200507, end: 20200507
  10. DEXAMETHASONE SODIUM PHOSPHATE [Concomitant]
     Active Substance: DEXAMETHASONE SODIUM PHOSPHATE
     Dosage: 6.6 MILLIGRAM, QD
     Route: 042
     Dates: start: 20200618, end: 20200618
  11. SOLU-MEDROL [Concomitant]
     Active Substance: METHYLPREDNISOLONE SODIUM SUCCINATE
     Indication: Aortitis
     Dosage: 500 MILLIGRAM, QD
     Route: 042
     Dates: start: 20200701, end: 20200703
  12. SOLDEM 3A [Concomitant]
     Active Substance: CARBOHYDRATES\POTASSIUM CHLORIDE\SODIUM CHLORIDE\SODIUM LACTATE
     Indication: Aortitis
     Dosage: 200 MILLILITER, QD
     Route: 042
     Dates: start: 20200701, end: 20200703
  13. PREDONINE [Concomitant]
     Active Substance: PREDNISOLONE
     Indication: Aortitis
     Dosage: 10 MILLIGRAM, TID
     Route: 048
     Dates: start: 20200704, end: 20200709
  14. PREDONINE [Concomitant]
     Active Substance: PREDNISOLONE
     Dosage: 25 MILLIGRAM (15 MG, 10 MG, 0 MG)
     Route: 048
     Dates: start: 20200710, end: 20200716
  15. PREDONINE [Concomitant]
     Active Substance: PREDNISOLONE
     Dosage: 20 MILLIGRAM, QD
     Route: 048
     Dates: start: 20200717, end: 20200723
  16. PREDONINE [Concomitant]
     Active Substance: PREDNISOLONE
     Dosage: 15 MILLIGRAM, QD
     Route: 048
     Dates: start: 20200724, end: 20200730
  17. PREDONINE [Concomitant]
     Active Substance: PREDNISOLONE
     Dosage: 10 MILLIGRAM, QD
     Route: 048
     Dates: start: 20200731, end: 20200806
  18. PREDONINE [Concomitant]
     Active Substance: PREDNISOLONE
     Dosage: 5 MILLIGRAM, QD
     Route: 048
     Dates: start: 20200807, end: 20200813
  19. PREDONINE [Concomitant]
     Active Substance: PREDNISOLONE
     Dosage: 2.5 MILLIGRAM, QD
     Route: 048
     Dates: start: 20200814, end: 20200820
  20. CEFTRIAXONE [Concomitant]
     Active Substance: CEFTRIAXONE
     Indication: Pyrexia
     Dosage: 2 GRAM, BID
     Route: 042
     Dates: start: 20200629, end: 20200701
  21. SODIUM CHLORIDE [Concomitant]
     Active Substance: SODIUM CHLORIDE
     Indication: Pyrexia
     Dosage: 100 ML, BID
     Route: 042
     Dates: start: 20200629, end: 20200701
  22. AMLODIPINE BESYLATE [Concomitant]
     Active Substance: AMLODIPINE BESYLATE
     Indication: Hypertension
     Dosage: 5 MILLIGRAM, QD
     Route: 048
  23. FILGRASTIM [Concomitant]
     Active Substance: FILGRASTIM
     Indication: Prophylaxis of nausea and vomiting
     Dosage: 3 MILLIGRAM, QD
     Route: 042
     Dates: start: 20200507, end: 20200507
  24. FILGRASTIM [Concomitant]
     Active Substance: FILGRASTIM
     Dosage: 3 MILLIGRAM, QD
     Route: 042
     Dates: start: 20200618, end: 20200618

REACTIONS (2)
  - Aortitis [Recovered/Resolved]
  - Febrile neutropenia [Recovered/Resolved]

NARRATIVE: CASE EVENT DATE: 20200625
